FAERS Safety Report 4947567-2 (Version None)
Quarter: 2006Q1

REPORT INFORMATION
  Report Type: 
  Country: None (occurrence: None)
  Receive Date: 20060320
  Receipt Date: 20060213
  Transmission Date: 20060701
  Serious: Yes (Hospitalization, Other)
  Sender: FDA-Public Use
  Company Number: PHNU2006DE00899

PATIENT
  Age: 45 Year
  Sex: Female
  Weight: 51 kg

DRUGS (14)
  1. ZOMETA [Suspect]
     Indication: METASTASES TO BONE
     Dosage: 4 MG, QMO
     Route: 042
     Dates: start: 20031201, end: 20051201
  2. TAMOXIFEN CITRATE [Concomitant]
     Dosage: 20 MG, QD
     Route: 048
     Dates: start: 20030901, end: 20040801
  3. ARIMIDEX [Concomitant]
     Dosage: 1 DF, QD
     Route: 048
     Dates: start: 20040801
  4. ZOLADEX [Concomitant]
     Dosage: 36 MG, UNK
     Route: 058
  5. MARCUMAR [Concomitant]
     Route: 048
  6. CALCIUM ACETATE [Concomitant]
     Dosage: 1 DF, TID
     Route: 065
  7. NORVASC [Concomitant]
     Dosage: 5 MG, QD
     Route: 048
  8. NEXIUM [Concomitant]
     Dosage: 20 MG, QD
     Route: 048
  9. CONCOR [Concomitant]
     Dosage: 5 MG, BID
     Route: 048
  10. LASIX [Concomitant]
     Dosage: 40 MG, BID
     Route: 048
  11. BONDIOL [Concomitant]
     Dosage: 1 MG, QW
     Route: 065
  12. DREISAVIT [Concomitant]
     Dosage: 1 DF, QD
     Route: 048
  13. DEKRISTOL [Concomitant]
     Dosage: 20000 IU, QMO
     Route: 065
  14. ARANESP [Concomitant]
     Dosage: 20 UG, QW

REACTIONS (28)
  - BLOOD CREATININE INCREASED [None]
  - BLOOD PARATHYROID HORMONE [None]
  - BLOOD UREA INCREASED [None]
  - C-REACTIVE PROTEIN INCREASED [None]
  - CATHETERISATION VENOUS [None]
  - DIALYSIS [None]
  - GLOMERULAR FILTRATION RATE DECREASED [None]
  - GLOMERULONEPHRITIS MEMBRANOUS [None]
  - HAEMATOCRIT DECREASED [None]
  - HAEMOGLOBIN DECREASED [None]
  - HELICOBACTER GASTRITIS [None]
  - HELICOBACTER PYLORI IDENTIFICATION TEST POSITIVE [None]
  - HYPERKALAEMIA [None]
  - HYPERPARATHYROIDISM SECONDARY [None]
  - HYPOCALCAEMIA [None]
  - KIDNEY ENLARGEMENT [None]
  - NEPHROGENIC ANAEMIA [None]
  - NEPHROTIC SYNDROME [None]
  - OESOPHAGOGASTRODUODENOSCOPY [None]
  - OLIGURIA [None]
  - PLEURAL EFFUSION [None]
  - PROTEIN TOTAL DECREASED [None]
  - PROTEINURIA [None]
  - PULMONARY OEDEMA [None]
  - RED BLOOD CELL COUNT DECREASED [None]
  - RENAL FAILURE ACUTE [None]
  - RENAL FAILURE CHRONIC [None]
  - RENAL HYPERTENSION [None]
